FAERS Safety Report 6075878-9 (Version None)
Quarter: 2009Q1

REPORT INFORMATION
  Report Type: 
  Country: None (occurrence: None)
  Receive Date: 20090212
  Receipt Date: 20090212
  Transmission Date: 20090719
  Serious: Yes (Death, Other)
  Sender: FDA-Public Use
  Company Number: DE-WYE-G03062709

PATIENT
  Sex: Male
  Weight: 91 kg

DRUGS (7)
  1. TORISEL [Suspect]
     Indication: METASTATIC RENAL CELL CARCINOMA
     Route: 042
     Dates: start: 20081111, end: 20081209
  2. BISOPROLOL [Concomitant]
  3. RANITIDINE [Concomitant]
     Indication: PREMEDICATION
     Route: 042
     Dates: start: 20081111, end: 20081209
  4. MORPHINE [Concomitant]
     Dosage: AS REQUIRED
  5. TAVEGIL [Concomitant]
     Indication: PREMEDICATION
     Route: 042
     Dates: start: 20081111, end: 20081209
  6. SIMVASTATIN [Concomitant]
  7. ACETYLSALICYLIC ACID SRT [Concomitant]

REACTIONS (2)
  - DISEASE PROGRESSION [None]
  - RESPIRATORY FAILURE [None]
